FAERS Safety Report 4699315-1 (Version None)
Quarter: 2005Q2

REPORT INFORMATION
  Report Type: 
  Country: None (occurrence: None)
  Receive Date: 20050624
  Receipt Date: 20050427
  Transmission Date: 20051028
  Serious: Yes (Hospitalization)
  Sender: FDA-Public Use
  Company Number: JP-GLAXOSMITHKLINE-B0379462A

PATIENT
  Age: 95 Year
  Sex: Female
  Weight: 41 kg

DRUGS (8)
  1. VALTREX [Suspect]
     Indication: HERPES ZOSTER
     Dosage: 1000MG THREE TIMES PER DAY
     Route: 048
     Dates: start: 20050421, end: 20050425
  2. DIOVAN [Concomitant]
     Indication: HYPERTENSION
     Dosage: 80MG PER DAY
     Route: 048
  3. LENDORM [Concomitant]
     Route: 048
  4. MUCOSTA [Concomitant]
     Indication: GASTRITIS
     Dosage: 300MG PER DAY
     Route: 048
     Dates: start: 20050421, end: 20050425
  5. KAMAG G [Concomitant]
     Route: 048
  6. DEPAS [Concomitant]
     Indication: RESTLESSNESS
     Dosage: 1.5MG PER DAY
     Route: 048
     Dates: start: 20050425, end: 20050426
  7. MAGNESIUM OXIDE [Concomitant]
     Indication: CONSTIPATION
     Dosage: 1.5G PER DAY
     Route: 048
     Dates: start: 20050501
  8. HALCION [Concomitant]
     Indication: INSOMNIA
     Dosage: .5UNIT PER DAY
     Route: 048

REACTIONS (3)
  - DELUSION [None]
  - DEPRESSED LEVEL OF CONSCIOUSNESS [None]
  - RENAL DISORDER [None]
